FAERS Safety Report 13181521 (Version 1)
Quarter: 2017Q1

REPORT INFORMATION
  Report Type: Spontaneous
  Country: RO (occurrence: RO)
  Receive Date: 20170202
  Receipt Date: 20170202
  Transmission Date: 20170428
  Serious: Yes (Other)
  Sender: FDA-Public Use
  Company Number: RO-JNJFOC-20170125520

PATIENT
  Sex: Female

DRUGS (2)
  1. DOXORUBICIN HYDROCHLORIDE. [Suspect]
     Active Substance: DOXORUBICIN HYDROCHLORIDE
     Indication: CHEMOTHERAPY
     Route: 042
  2. NEBIVOLOL. [Suspect]
     Active Substance: NEBIVOLOL
     Indication: CHEMOTHERAPY
     Route: 065

REACTIONS (2)
  - Cardiotoxicity [Unknown]
  - Left ventricular dysfunction [Unknown]
